FAERS Safety Report 8263577-4 (Version None)
Quarter: 2012Q2

REPORT INFORMATION
  Report Type: 
  Country: None (occurrence: None)
  Receive Date: 20120405
  Receipt Date: 20120327
  Transmission Date: 20120825
  Serious: Yes (Other)
  Sender: FDA-Public Use
  Company Number: US-ABBOTT-12P-163-0895954-00

PATIENT
  Sex: Female

DRUGS (12)
  1. VICTOZA [Concomitant]
     Indication: DIABETES MELLITUS
     Route: 058
  2. FISH OIL [Concomitant]
     Indication: SUPPLEMENTATION THERAPY
  3. MELOXICAM [Concomitant]
     Indication: ARTHRALGIA
  4. GEMFIBROZIL [Concomitant]
     Indication: BLOOD CHOLESTEROL INCREASED
  5. FLUOXETINE [Concomitant]
     Indication: DEPRESSION
  6. ZIAC [Concomitant]
     Indication: HYPERTENSION
     Dosage: 10/6.25 MILLIGRAMS
  7. HUMIRA [Suspect]
     Indication: PSORIASIS
     Dates: start: 20111103
  8. HYDROCHLOROTHIAZIDE [Concomitant]
     Indication: HYPERTENSION
  9. FLEXERIL [Concomitant]
     Indication: MYALGIA
  10. POTASSIUM CHLORIDE [Concomitant]
     Indication: PRODUCT USED FOR UNKNOWN INDICATION
     Dosage: CR8
  11. CLARITIN-D 24 HOUR [Concomitant]
     Indication: HYPERSENSITIVITY
  12. HYDROCODONE BITARTRATE AND ACETAMINOPHEN [Concomitant]
     Indication: PAIN

REACTIONS (7)
  - LYMPHADENOPATHY [None]
  - LYMPH GLAND INFECTION [None]
  - CARDIAC DISORDER [None]
  - NECK MASS [None]
  - UPPER RESPIRATORY TRACT INFECTION [None]
  - HEART VALVE INCOMPETENCE [None]
  - MIDDLE EAR EFFUSION [None]
